FAERS Safety Report 9914080 (Version 2)
Quarter: 2014Q1

REPORT INFORMATION
  Report Type: Spontaneous
  Country: US (occurrence: US)
  Receive Date: 20140220
  Receipt Date: 20140220
  Transmission Date: 20141002
  Serious: No
  Sender: FDA-Public Use
  Company Number: US-MYLANLABS-2013S1007709

PATIENT
  Age: 33 Year
  Sex: Female
  Weight: 65.77 kg

DRUGS (3)
  1. ALPRAZOLAM TABLETS, USP [Suspect]
     Indication: ANXIETY
     Dosage: PRESCRIBED 0.5MG PRN UP TO TID
     Route: 048
     Dates: start: 20130306, end: 20130306
  2. WELLBUTRIN XL [Concomitant]
     Indication: DEPRESSION
     Route: 048
  3. ADDERALL [Concomitant]
     Indication: ATTENTION DEFICIT/HYPERACTIVITY DISORDER
     Route: 048

REACTIONS (3)
  - Drug ineffective [Recovered/Resolved]
  - Anxiety [Recovered/Resolved]
  - Incorrect dose administered [Recovered/Resolved]
